FAERS Safety Report 4809334-X (Version None)
Quarter: 2005Q4

REPORT INFORMATION
  Report Type: 
  Country: None (occurrence: None)
  Receive Date: 20051021
  Receipt Date: 20020528
  Transmission Date: 20060501
  Serious: No
  Sender: FDA-Public Use
  Company Number: USA020516183

PATIENT
  Sex: Female

DRUGS (3)
  1. ZYPREXA [Suspect]
     Indication: MANIA
  2. CYTOMEL [Concomitant]
  3. LEVOXYL [Concomitant]

REACTIONS (2)
  - MUSCULOSKELETAL STIFFNESS [None]
  - WHITE BLOOD CELL COUNT INCREASED [None]
